FAERS Safety Report 8978871 (Version 1)
Quarter: 2012Q4

REPORT INFORMATION
  Report Type: Spontaneous
  Country: US (occurrence: None)
  Receive Date: 20121218
  Receipt Date: 20121218
  Transmission Date: 20130627
  Serious: Yes (Other)
  Sender: FDA-Public Use
  Company Number: None

PATIENT
  Age: 60 Year
  Sex: Female
  Weight: 63.05 kg

DRUGS (1)
  1. TERBINAFINE HYDROCHLORIDE [Suspect]
     Indication: FUNGAL INFECTION OF NAIL
     Route: 048

REACTIONS (2)
  - Headache [None]
  - Irritability [None]
